FAERS Safety Report 5320315-2 (Version None)
Quarter: 2007Q1

REPORT INFORMATION
  Report Type: 
  Country: None (occurrence: None)
  Receive Date: 20070215
  Receipt Date: 20060825
  Transmission Date: 20070707
  Serious: Yes (Other)
  Sender: FDA-Public Use
  Company Number: MC200600564

PATIENT
  Age: 77 Year
  Sex: Female

DRUGS (4)
  1. ANGIOMAX [Suspect]
     Indication: CARDIAC OPERATION
     Dosage: SEE IMAGE
     Route: 042
     Dates: start: 20060816, end: 20060816
  2. ANGIOMAX [Suspect]
     Indication: CARDIAC OPERATION
     Dosage: SEE IMAGE
     Route: 042
     Dates: start: 20060816, end: 20060816
  3. COUMADIN [Concomitant]
  4. WARFARIN SODIUM [Concomitant]

REACTIONS (1)
  - HAEMORRHAGE [None]
